FAERS Safety Report 9924327 (Version 1)
Quarter: 2014Q1

REPORT INFORMATION
  Report Type: Report from Study
  Country: US (occurrence: US)
  Receive Date: 20140226
  Receipt Date: 20140226
  Transmission Date: 20141002
  Serious: Yes (Other)
  Sender: FDA-Public Use
  Company Number: US-ROCHE-1332961

PATIENT
  Age: 64 Year
  Sex: Female

DRUGS (15)
  1. LUCENTIS [Suspect]
     Indication: RETINAL OEDEMA
     Route: 050
     Dates: start: 20100726
  2. LUCENTIS [Suspect]
     Indication: RETINAL VEIN OCCLUSION
  3. AVASTIN [Suspect]
     Indication: CYSTOID MACULAR OEDEMA
     Route: 050
     Dates: start: 20100614, end: 20100614
  4. PRED FORTE [Concomitant]
     Dosage: GTTS OU AS DIRECTED
     Route: 047
  5. CALCIUM CITRATE [Concomitant]
     Route: 048
  6. FISH OIL [Concomitant]
     Route: 048
  7. LEVOTHYROXINE SODIUM [Concomitant]
     Route: 048
  8. ZYMAR [Concomitant]
     Dosage: X 3 DAYS POST-OP GTTS
     Route: 065
  9. COSOPT [Concomitant]
     Route: 065
  10. VITAMIN C [Concomitant]
     Route: 048
  11. VITAMIN D3 [Concomitant]
     Route: 048
  12. DORZOLAMIDE HYDROCHLORIDE [Concomitant]
  13. AKTEN [Concomitant]
     Dosage: GTTS
     Route: 065
  14. PROPARACAINE [Concomitant]
     Indication: PREOPERATIVE CARE
     Dosage: GTTS
     Route: 065
  15. TETRAVISC [Concomitant]
     Indication: PREOPERATIVE CARE
     Dosage: GTTS
     Route: 065

REACTIONS (5)
  - Cystoid macular oedema [Unknown]
  - Visual impairment [Unknown]
  - Vitreous floaters [Unknown]
  - Off label use [Unknown]
  - Visual acuity reduced [Unknown]
